FAERS Safety Report 20974603 (Version 6)
Quarter: 2022Q4

REPORT INFORMATION
  Report Type: Report from Study
  Country: US (occurrence: US)
  Receive Date: 20220617
  Receipt Date: 20221104
  Transmission Date: 20230113
  Serious: Yes (Hospitalization, Other)
  Sender: FDA-Public Use
  Company Number: US-TAKEDA-2022TUS027568

PATIENT
  Age: 64 Year
  Sex: Female

DRUGS (3)
  1. MOBOCERTINIB [Suspect]
     Active Substance: MOBOCERTINIB
     Indication: Lung neoplasm malignant
     Dosage: 160 MILLIGRAM, QD
     Route: 048
     Dates: start: 20220423
  2. MOBOCERTINIB [Suspect]
     Active Substance: MOBOCERTINIB
     Dosage: 120 MILLIGRAM, QD
     Route: 048
  3. MOBOCERTINIB [Suspect]
     Active Substance: MOBOCERTINIB
     Dosage: 80 MILLIGRAM, QD
     Route: 048

REACTIONS (23)
  - Dehydration [Unknown]
  - Red blood cell count decreased [Unknown]
  - Pneumonia [Unknown]
  - Hyperthyroidism [Unknown]
  - Dizziness [Recovering/Resolving]
  - Body temperature increased [Unknown]
  - Night sweats [Unknown]
  - Epistaxis [Recovering/Resolving]
  - Memory impairment [Unknown]
  - Frequent bowel movements [Unknown]
  - Nasal dryness [Unknown]
  - Tongue dry [Unknown]
  - Tongue discomfort [Unknown]
  - Laboratory test abnormal [Recovered/Resolved]
  - Sinus disorder [Recovering/Resolving]
  - Weight decreased [Recovering/Resolving]
  - Stomatitis [Recovered/Resolved]
  - Dyspepsia [Unknown]
  - Nausea [Recovering/Resolving]
  - Decreased appetite [Recovering/Resolving]
  - Diarrhoea [Unknown]
  - Vomiting [Unknown]
  - Product dose omission issue [Unknown]

NARRATIVE: CASE EVENT DATE: 20220425
